FAERS Safety Report 11236223 (Version 1)
Quarter: 2015Q3

REPORT INFORMATION
  Report Type: Spontaneous
  Country: US (occurrence: US)
  Receive Date: 20150702
  Receipt Date: 20150702
  Transmission Date: 20151125
  Serious: Yes (Hospitalization, Other)
  Sender: FDA-Public Use
  Company Number: US-GILEAD-2015-0161052

PATIENT
  Age: 82 Year
  Sex: Female

DRUGS (4)
  1. PLAVIX [Concomitant]
     Active Substance: CLOPIDOGREL BISULFATE
  2. RANEXA [Suspect]
     Active Substance: RANOLAZINE
     Indication: HYPERHIDROSIS
     Dosage: 2000 MG, QD
     Route: 065
     Dates: start: 2015
  3. RANEXA [Suspect]
     Active Substance: RANOLAZINE
     Indication: ANGINA PECTORIS
     Dosage: 1000 MG, QD
     Route: 065
     Dates: start: 2015, end: 2015
  4. RANEXA [Suspect]
     Active Substance: RANOLAZINE
     Indication: ANXIETY

REACTIONS (9)
  - Hyperhidrosis [Unknown]
  - Angina pectoris [Unknown]
  - Back pain [Unknown]
  - Dysuria [Unknown]
  - Constipation [Unknown]
  - Dizziness [Unknown]
  - Anxiety [Unknown]
  - Cardiac flutter [Unknown]
  - Gastrooesophageal reflux disease [Unknown]

NARRATIVE: CASE EVENT DATE: 2015
